FAERS Safety Report 7700986-3 (Version None)
Quarter: 2011Q3

REPORT INFORMATION
  Report Type: 
  Country: None (occurrence: None)
  Receive Date: 20110822
  Receipt Date: 20110815
  Transmission Date: 20111222
  Serious: Yes (Death)
  Sender: FDA-Public Use
  Company Number: US-ASTELLAS-2011US004961

PATIENT
  Sex: Female
  Weight: 82 kg

DRUGS (1)
  1. PROGRAF [Suspect]
     Indication: LIVER TRANSPLANT
     Dosage: 3 MG, UID/QD
     Route: 048
     Dates: start: 20011019

REACTIONS (4)
  - RENAL FAILURE [None]
  - PNEUMONIA [None]
  - SEPTIC SHOCK [None]
  - CARDIO-RESPIRATORY ARREST [None]
